FAERS Safety Report 24621247 (Version 2)
Quarter: 2025Q1

REPORT INFORMATION
  Report Type: Spontaneous
  Country: US (occurrence: US)
  Receive Date: 20241114
  Receipt Date: 20250304
  Transmission Date: 20250408
  Serious: Yes (Other)
  Sender: UROGEN PHARMA
  Company Number: US-UROGEN PHARMA LTD.-2024-UGN-000139

PATIENT

DRUGS (9)
  1. JELMYTO [Suspect]
     Active Substance: MITOMYCIN
     Indication: Malignant neoplasm of renal pelvis
     Dosage: 80 MILLIGRAM, ONCE A WEEK, UNILATERAL, (INSTILLATION)
     Route: 065
     Dates: start: 20240508, end: 20240508
  2. JELMYTO [Suspect]
     Active Substance: MITOMYCIN
     Dosage: 80 MILLIGRAM, ONCE A WEEK, UNILATERAL, (INSTILLATION)
     Route: 065
     Dates: start: 20240515, end: 20240515
  3. JELMYTO [Suspect]
     Active Substance: MITOMYCIN
     Dosage: 80 MILLIGRAM, ONCE A WEEK, UNILATERAL, (INSTILLATION)
     Route: 065
     Dates: start: 20240522, end: 20240522
  4. JELMYTO [Suspect]
     Active Substance: MITOMYCIN
     Dosage: 80 MILLIGRAM, ONCE A WEEK, UNILATERAL, (INSTILLATION)
     Route: 065
     Dates: start: 20240529, end: 20240529
  5. JELMYTO [Suspect]
     Active Substance: MITOMYCIN
     Dosage: 80 MILLIGRAM, ONCE A WEEK, UNILATERAL, (INSTILLATION)
     Route: 065
     Dates: start: 20240605, end: 20240605
  6. JELMYTO [Suspect]
     Active Substance: MITOMYCIN
     Dosage: 80 MILLIGRAM, ONCE A WEEK, UNILATERAL, (INSTILLATION)
     Route: 065
     Dates: start: 20240612, end: 20240612
  7. JELMYTO [Suspect]
     Active Substance: MITOMYCIN
     Dosage: 80 MILLIGRAM, ONCE A MONTH, UNILATERAL, (INSTILLATION)
     Route: 065
     Dates: start: 20241011, end: 20241011
  8. JELMYTO [Suspect]
     Active Substance: MITOMYCIN
     Dosage: 80 MILLIGRAM, ONCE A MONTH, UNILATERAL, (INSTILLATION)
     Route: 065
     Dates: start: 20241108, end: 20241108
  9. JELMYTO [Suspect]
     Active Substance: MITOMYCIN
     Dosage: 80 MILLIGRAM, ONCE A MONTH, UNILATERAL, (INSTILLATION)
     Route: 065
     Dates: start: 20241213, end: 20241213

REACTIONS (3)
  - Ureteric stenosis [Unknown]
  - COVID-19 [Unknown]
  - Inflammation [Unknown]

NARRATIVE: CASE EVENT DATE: 20240101
